FAERS Safety Report 5946650-2 (Version None)
Quarter: 2008Q4

REPORT INFORMATION
  Report Type: 
  Country: None (occurrence: None)
  Receive Date: 20081110
  Receipt Date: 20081027
  Transmission Date: 20090506
  Serious: Yes (Death, Hospitalization, Other)
  Sender: FDA-Public Use
  Company Number: US-ROCHE-593609

PATIENT
  Age: 46 Year
  Sex: Male

DRUGS (2)
  1. PEG-INTERFERON ALFA 2A (RO 25-8310) [Suspect]
     Indication: HEPATITIS C
     Route: 065
  2. PROPRANOLOL [Concomitant]

REACTIONS (3)
  - HEPATIC ENCEPHALOPATHY [None]
  - HYPERAMMONAEMIA [None]
  - RENAL FAILURE [None]
